FAERS Safety Report 5144739-1 (Version None)
Quarter: 2006Q4

REPORT INFORMATION
  Report Type: 
  Country: None (occurrence: None)
  Receive Date: 20061107
  Receipt Date: 20061026
  Transmission Date: 20070319
  Serious: Yes (Life-Threatening, Hospitalization, Other)
  Sender: FDA-Public Use
  Company Number: US-JNJFOC-20061006913

PATIENT
  Sex: Male
  Weight: 93.21 kg

DRUGS (16)
  1. REOPRO [Suspect]
     Dosage: 0.61 MG/HR (17 ML/HR)
  2. REOPRO [Suspect]
     Indication: ACUTE MYOCARDIAL INFARCTION
     Dosage: 0.41 MG (11.5 ML) BOLUS
  3. ANGIOMAX [Suspect]
     Route: 042
  4. ANGIOMAX [Suspect]
     Route: 042
  5. ANGIOMAX [Suspect]
     Route: 042
  6. ANGIOMAX [Suspect]
     Route: 042
  7. ANGIOMAX [Suspect]
     Route: 042
  8. ANGIOMAX [Suspect]
     Route: 042
  9. ANGIOMAX [Suspect]
     Route: 042
  10. ANGIOMAX [Suspect]
     Indication: ANGIOPLASTY
     Route: 042
  11. ASPIRIN [Concomitant]
  12. PLAVIX [Concomitant]
  13. NITROGLYCERIN [Concomitant]
  14. LOPRESSOR [Concomitant]
  15. MORPHINE SULFATE [Concomitant]
  16. IMMUNE GLOBULIN INTRAVENOUS (HUMAN) [Concomitant]

REACTIONS (6)
  - CHEST PAIN [None]
  - CORONARY ARTERY REOCCLUSION [None]
  - CORONARY ARTERY THROMBOSIS [None]
  - GASTROINTESTINAL HAEMORRHAGE [None]
  - HAEMOGLOBIN DECREASED [None]
  - THROMBOCYTOPENIA [None]
